FAERS Safety Report 15295498 (Version 1)
Quarter: 2018Q3

REPORT INFORMATION
  Report Type: Spontaneous
  Country: US (occurrence: US)
  Receive Date: 20180807
  Receipt Date: 20180807
  Transmission Date: 20181010
  Serious: Yes (Disabling)
  Sender: FDA-Public Use
  Company Number: None

PATIENT
  Age: 48 Year
  Sex: Female
  Weight: 56.7 kg

DRUGS (4)
  1. NATURE?THROID [Suspect]
     Active Substance: THYROID, PORCINE
  2. LEVOTHYROXINE. [Suspect]
     Active Substance: LEVOTHYROXINE
  3. SYNTHROID [Suspect]
     Active Substance: LEVOTHYROXINE SODIUM
  4. ARMOUR THYROID [Suspect]
     Active Substance: THYROID, PORCINE

REACTIONS (7)
  - Fatigue [None]
  - Palpitations [None]
  - Headache [None]
  - Vomiting [None]
  - Diarrhoea [None]
  - Drug hypersensitivity [None]
  - Treatment failure [None]

NARRATIVE: CASE EVENT DATE: 20120101
